FAERS Safety Report 6310106-8 (Version None)
Quarter: 2009Q3

REPORT INFORMATION
  Report Type: 
  Country: None (occurrence: None)
  Receive Date: 20090814
  Receipt Date: 20090804
  Transmission Date: 20100115
  Serious: No
  Sender: FDA-Public Use
  Company Number: BR-ROCHE-648787

PATIENT
  Sex: Female

DRUGS (2)
  1. ROACUTAN [Suspect]
     Indication: ACNE
     Route: 064
     Dates: start: 20070501, end: 20070516
  2. YAZ [Suspect]
     Indication: CONTRACEPTION
     Route: 064

REACTIONS (2)
  - NORMAL NEWBORN [None]
  - TREMOR [None]
